FAERS Safety Report 10420376 (Version 2)
Quarter: 2014Q3

REPORT INFORMATION
  Report Type: Spontaneous
  Country: US (occurrence: None)
  Receive Date: 20140701
  Receipt Date: 20140926
  Transmission Date: 20150326
  Serious: No
  Sender: FDA-Public Use
  Company Number: 1000067770

PATIENT
  Age: 59 Year
  Sex: Male

DRUGS (8)
  1. VASOTEC (ENLAPRIL) (ENLAPRIL) [Concomitant]
  2. LIPITOR (ATORVASTATIN CALCIUM) (ATORVASTATIN CALCIUM) [Concomitant]
  3. TRAZODONE [Concomitant]
     Active Substance: TRAZODONE HYDROCHLORIDE
  4. KLONOPIN [Concomitant]
     Active Substance: CLONAZEPAM
  5. BABY ASPIRIN (ACETYLSALICYLIC ACID) (81 MILLIGRAM) (ACETYLSALICYLIC ACID) [Concomitant]
  6. LINZESS [Suspect]
     Active Substance: LINACLOTIDE
     Indication: IRRITABLE BOWEL SYNDROME
     Dosage: 1 IN 1 D
     Route: 048
     Dates: start: 20140529, end: 20140531
  7. PROTONIX [Concomitant]
     Active Substance: PANTOPRAZOLE SODIUM
  8. VITAMIN D (VITAMIN D) (VITAMIN D) [Concomitant]

REACTIONS (2)
  - Diarrhoea [None]
  - Off label use [None]

NARRATIVE: CASE EVENT DATE: 20140529
